FAERS Safety Report 8302078-1 (Version None)
Quarter: 2012Q2

REPORT INFORMATION
  Report Type: 
  Country: None (occurrence: None)
  Receive Date: 20120420
  Receipt Date: 20120409
  Transmission Date: 20120825
  Serious: Yes (Other)
  Sender: FDA-Public Use
  Company Number: US-MERCK-1202USA00194

PATIENT
  Age: 72 Year
  Sex: Female

DRUGS (2)
  1. CYTOMEL [Concomitant]
     Route: 065
  2. JANUVIA [Suspect]
     Route: 048
     Dates: start: 20090101

REACTIONS (3)
  - ADVERSE EVENT [None]
  - THYROID DISORDER [None]
  - PRURITUS [None]
